FAERS Safety Report 17176813 (Version 1)
Quarter: 2019Q4

REPORT INFORMATION
  Report Type: Report from Study
  Country: JP (occurrence: JP)
  Receive Date: 20191219
  Receipt Date: 20191219
  Transmission Date: 20200122
  Serious: Yes (Death, Hospitalization)
  Sender: FDA-Public Use
  Company Number: JP-ASTRAZENECA-2019SF84468

PATIENT
  Age: 76 Year
  Sex: Male
  Weight: 60 kg

DRUGS (2)
  1. RADIOTHERAPY [Suspect]
     Active Substance: RADIATION THERAPY
     Indication: NON-SMALL CELL LUNG CANCER
     Dosage: 60 GY/30 FR, V 20: 33.1%
     Route: 065
     Dates: start: 20190304, end: 20190415
  2. IMFINZI [Suspect]
     Active Substance: DURVALUMAB
     Indication: NON-SMALL CELL LUNG CANCER
     Route: 041
     Dates: start: 20190422, end: 20190702

REACTIONS (6)
  - Pain [Unknown]
  - Radiation pneumonitis [Recovering/Resolving]
  - Dehydration [Unknown]
  - Malignant neoplasm progression [Fatal]
  - Metastases to central nervous system [Fatal]
  - Renal failure [Unknown]

NARRATIVE: CASE EVENT DATE: 2019
